FAERS Safety Report 5008476-6 (Version None)
Quarter: 2006Q2

REPORT INFORMATION
  Report Type: 
  Country: None (occurrence: None)
  Receive Date: 20060522
  Receipt Date: 20060522
  Transmission Date: 20061013
  Serious: Yes (Life-Threatening, Other)
  Sender: FDA-Public Use
  Company Number: None

PATIENT
  Age: 35 Year
  Sex: Male
  Weight: 90.7194 kg

DRUGS (2)
  1. HUMULIN N [Suspect]
     Indication: DIABETES MELLITUS INSULIN-DEPENDENT
     Dosage: 30      2 TIMES PER DAY    CUTANEOUS
     Route: 003
     Dates: start: 19990722, end: 20001227
  2. HUMULIN R [Suspect]
     Dosage: 10     2 TIMES      CUTANEOUS
     Route: 003

REACTIONS (1)
  - DIABETES MELLITUS INADEQUATE CONTROL [None]
